FAERS Safety Report 4620703-3 (Version None)
Quarter: 2005Q1

REPORT INFORMATION
  Report Type: 
  Country: None (occurrence: None)
  Receive Date: 20050325
  Receipt Date: 20050315
  Transmission Date: 20050727
  Serious: Yes (Other)
  Sender: FDA-Public Use
  Company Number: CHNY2005US00591

PATIENT
  Age: 11 Year
  Sex: Male
  Weight: 72.7 kg

DRUGS (2)
  1. BUCKLEY'S MIXTURE (USA) (NCH) (DEXTROMETHORPHAN HYDROBROMIDE) SYRUP [Suspect]
     Dosage: 1 DF, ONCE/SINGLE
  2. SINGULAIR (MONTELUKAST) [Concomitant]

REACTIONS (2)
  - NASOPHARYNGITIS [None]
  - WHEEZING [None]
